FAERS Safety Report 12932960 (Version 5)
Quarter: 2017Q1

REPORT INFORMATION
  Report Type: Report from Study
  Country: US (occurrence: US)
  Receive Date: 20161111
  Receipt Date: 20170314
  Transmission Date: 20170428
  Serious: Yes (Hospitalization, Other)
  Sender: FDA-Public Use
  Company Number: US-PFIZER INC-2016521979

PATIENT
  Age: 39 Year
  Sex: Female

DRUGS (4)
  1. IBRANCE [Suspect]
     Active Substance: PALBOCICLIB
     Indication: BREAST CANCER
     Dosage: 100 MG, CYCLIC (ONCE DAILY FOR 21 DAYS THEN 1 WEEK OFF)
     Route: 048
     Dates: start: 20160921
  2. XGEVA [Concomitant]
     Active Substance: DENOSUMAB
     Indication: BREAST CANCER
     Dosage: 120 MG, UNK
     Dates: start: 20160920
  3. FASLODEX [Concomitant]
     Active Substance: FULVESTRANT
     Indication: BREAST CANCER
     Dosage: 500 MG, UNK
     Dates: start: 20160920
  4. IBRANCE [Suspect]
     Active Substance: PALBOCICLIB
     Dosage: 125 MG, CYCLIC (ONCE DAILY FOR 21 DAYS AND THEN 1 WEEK OFF)
     Route: 048
     Dates: start: 20161001, end: 20161107

REACTIONS (3)
  - Febrile neutropenia [Recovered/Resolved]
  - Fatigue [Unknown]
  - Leukopenia [Unknown]

NARRATIVE: CASE EVENT DATE: 20161028
